FAERS Safety Report 15694023 (Version 2)
Quarter: 2019Q2

REPORT INFORMATION
  Report Type: Spontaneous
  Country: CA (occurrence: CA)
  Receive Date: 20181206
  Receipt Date: 20190410
  Transmission Date: 20190711
  Serious: Yes (Other)
  Sender: FDA-Public Use
  Company Number: CA-SA-2018SA327060

PATIENT
  Age: 60 Year
  Sex: Female

DRUGS (9)
  1. OCALIVA [Suspect]
     Active Substance: OBETICHOLIC ACID
     Dosage: 10 MG, QD
     Route: 048
     Dates: start: 20180108, end: 20180314
  2. FENOFIBRATE. [Concomitant]
     Active Substance: FENOFIBRATE
     Dosage: UNK
  3. RIFAMPICIN [Suspect]
     Active Substance: RIFAMPIN
     Dosage: 150 MG, QD
     Dates: start: 201803
  4. OCALIVA [Suspect]
     Active Substance: OBETICHOLIC ACID
     Dosage: 5 MG, QD
     Route: 048
     Dates: start: 201803
  5. RIFAMPICIN [Suspect]
     Active Substance: RIFAMPIN
     Indication: PRURITUS
     Dosage: 150 MG, QD
  6. RIFAMPICIN [Suspect]
     Active Substance: RIFAMPIN
     Indication: PRODUCT USED FOR UNKNOWN INDICATION
     Dosage: 150 MG, BID
     Dates: start: 20180308, end: 201803
  7. OCALIVA [Suspect]
     Active Substance: OBETICHOLIC ACID
     Indication: PRIMARY BILIARY CHOLANGITIS
     Dosage: 5 MG, QD
     Route: 048
     Dates: start: 20170830, end: 20180107
  8. URSODEOXYCHOLIC ACID [Suspect]
     Active Substance: URSODIOL
     Indication: PRODUCT USED FOR UNKNOWN INDICATION
     Dosage: 500 MG, BID
  9. HYDROXYZINE [Concomitant]
     Active Substance: HYDROXYZINE HYDROCHLORIDE
     Dosage: UNK

REACTIONS (21)
  - Fatigue [Unknown]
  - Dysuria [Unknown]
  - Eye pain [Unknown]
  - Alanine aminotransferase increased [Unknown]
  - Headache [Unknown]
  - Sinusitis [Unknown]
  - Insomnia [Unknown]
  - Hot flush [Unknown]
  - Rash [Unknown]
  - Ocular icterus [Unknown]
  - Abdominal pain upper [Unknown]
  - Myalgia [Unknown]
  - Pruritus [Unknown]
  - Urticaria [Unknown]
  - Chills [Unknown]
  - Blood alkaline phosphatase increased [Unknown]
  - Vomiting [Unknown]
  - Nephrolithiasis [Unknown]
  - Nervousness [Unknown]
  - Aspartate aminotransferase increased [Unknown]
  - Nausea [Unknown]
